FAERS Safety Report 9238196 (Version 2)
Quarter: 2013Q2

REPORT INFORMATION
  Report Type: Spontaneous
  Country: US (occurrence: None)
  Receive Date: 20130415
  Receipt Date: 20130416
  Transmission Date: 20140414
  Serious: Yes (Other)
  Sender: FDA-Public Use
  Company Number: ADE13-004

PATIENT
  Age: 60 Year
  Sex: Female
  Weight: 77 kg

DRUGS (17)
  1. HEPARIN SODIUM [Suspect]
     Indication: ATRIAL TACHYCARDIA
     Dosage: SEE B5
     Dates: start: 20130403, end: 20130403
  2. MIDAZOLAM [Concomitant]
  3. FENTANYL [Concomitant]
  4. HYDROCORTISONE [Concomitant]
  5. BENADRYL [Concomitant]
  6. METOPROLOL [Concomitant]
  7. NACL [Concomitant]
  8. MECLIZINE [Concomitant]
  9. ALPRAZOLAM [Concomitant]
  10. ECOTRIN [Concomitant]
  11. CENTRUM SILVER [Concomitant]
  12. PROPRANOLOL [Concomitant]
  13. FENOFIBRATE [Concomitant]
  14. VERAPAMIL [Concomitant]
  15. DIGOXIN [Concomitant]
  16. NIACIN [Concomitant]
  17. ZETIA [Concomitant]

REACTIONS (1)
  - Drug effect decreased [None]
